FAERS Safety Report 6198465-0 (Version None)
Quarter: 2009Q2

REPORT INFORMATION
  Report Type: 
  Country: None (occurrence: None)
  Receive Date: 20090521
  Receipt Date: 20090513
  Transmission Date: 20091009
  Serious: Yes (Other)
  Sender: FDA-Public Use
  Company Number: PHEH2008US10230

PATIENT
  Sex: Female
  Weight: 67.12 kg

DRUGS (17)
  1. ZOMETA [Suspect]
     Dosage: 4MG
     Dates: end: 20060401
  2. AREDIA [Suspect]
  3. ALKERAN [Concomitant]
  4. PREDNISONE [Concomitant]
  5. COZAAR [Concomitant]
     Dosage: 50 MG
  6. ATENOLOL [Concomitant]
     Dosage: 50 MG
  7. MODURETIC 5-50 [Concomitant]
     Dosage: 500 MG
  8. ZOCOR [Concomitant]
  9. ACIPHEX [Concomitant]
  10. FOSAMAX [Concomitant]
  11. ACTONEL [Concomitant]
  12. FAMVIR                                  /NET/ [Concomitant]
     Dosage: UNK
     Dates: start: 20050901
  13. PEPCID [Concomitant]
  14. LEVAQUIN [Concomitant]
  15. LIPITOR [Concomitant]
  16. THALIDOMIDE [Concomitant]
  17. DECADRON                                /CAN/ [Concomitant]

REACTIONS (22)
  - ANXIETY [None]
  - ARTHRALGIA [None]
  - CHOLECYSTECTOMY [None]
  - CHOLECYSTITIS [None]
  - GASTROOESOPHAGEAL REFLUX DISEASE [None]
  - HERPES ZOSTER [None]
  - HYPERLIPIDAEMIA [None]
  - HYPERTENSION [None]
  - LOOSE TOOTH [None]
  - METASTATIC NEOPLASM [None]
  - MYOPATHY [None]
  - OSTEONECROSIS [None]
  - OSTEOPENIA [None]
  - OSTEOPOROSIS [None]
  - PAIN IN JAW [None]
  - RESORPTION BONE INCREASED [None]
  - RIB FRACTURE [None]
  - SCOLIOSIS [None]
  - TENDONITIS [None]
  - TONSILLAR DISORDER [None]
  - TOOTH DISORDER [None]
  - TOOTH EXTRACTION [None]
